FAERS Safety Report 16418817 (Version 1)
Quarter: 2019Q2

REPORT INFORMATION
  Report Type: Spontaneous
  Country: FR (occurrence: FR)
  Receive Date: 20190612
  Receipt Date: 20190612
  Transmission Date: 20190711
  Serious: Yes (Other)
  Sender: FDA-Public Use
  Company Number: FR-AUROBINDO-AUR-APL-2018-001152

PATIENT

DRUGS (14)
  1. OXALIPLATIN. [Suspect]
     Active Substance: OXALIPLATIN
     Indication: COLORECTAL CANCER METASTATIC
     Dosage: 155.55 MG, UNK
     Route: 065
     Dates: start: 20150108
  2. ELVORINE [Suspect]
     Active Substance: LEUCOVORIN CALCIUM
     Indication: COLORECTAL CANCER METASTATIC
     Dosage: 366 MG, UNK
     Route: 065
     Dates: start: 20150108
  3. 5-FU [Suspect]
     Active Substance: FLUOROURACIL
     Dosage: 4392 MG, UNK
     Route: 041
     Dates: start: 20150124
  4. 5-FU [Suspect]
     Active Substance: FLUOROURACIL
     Dosage: 732 MG, UNK
     Route: 040
     Dates: start: 20150326
  5. PERINDOPRIL [Concomitant]
     Active Substance: PERINDOPRIL
     Indication: PRODUCT USED FOR UNKNOWN INDICATION
     Dosage: 50 MG, UNK
     Route: 065
  6. KARDEGIC [Concomitant]
     Active Substance: ASPIRIN DL-LYSINE
     Indication: PRODUCT USED FOR UNKNOWN INDICATION
     Dosage: UNK
     Route: 065
  7. 5-FU [Suspect]
     Active Substance: FLUOROURACIL
     Dosage: 4392 MG, UNK
     Route: 041
     Dates: start: 20150326
  8. ELVORINE [Suspect]
     Active Substance: LEUCOVORIN CALCIUM
     Dosage: 366 MG, UNK
     Route: 065
     Dates: start: 20150326
  9. AVASTIN [Suspect]
     Active Substance: BEVACIZUMAB
     Indication: COLORECTAL CANCER METASTATIC
     Dosage: 365 MG, UNK
     Route: 065
     Dates: start: 20150108
  10. AVASTIN [Suspect]
     Active Substance: BEVACIZUMAB
     Dosage: 350MG, UNK
     Route: 065
     Dates: start: 20150326
  11. OXALIPLATIN. [Suspect]
     Active Substance: OXALIPLATIN
     Dosage: 155 MILLIGRAM, UNK
     Route: 065
     Dates: start: 20150326
  12. 5-FU [Suspect]
     Active Substance: FLUOROURACIL
     Indication: COLORECTAL CANCER METASTATIC
     Dosage: 732 MG, UNK
     Route: 040
     Dates: start: 20150108
  13. BRILIQUE [Concomitant]
     Active Substance: TICAGRELOR
     Indication: PRODUCT USED FOR UNKNOWN INDICATION
     Dosage: UNK
     Route: 065
  14. BISOPROLOL [Concomitant]
     Active Substance: BISOPROLOL
     Indication: PRODUCT USED FOR UNKNOWN INDICATION
     Dosage: 50 MG, UNK
     Route: 065

REACTIONS (5)
  - Leukopenia [Recovered/Resolved]
  - Lymphopenia [Recovered/Resolved]
  - Neutropenia [Recovered/Resolved]
  - Anaemia [Recovered/Resolved]
  - Peripheral arterial occlusive disease [Recovered/Resolved]

NARRATIVE: CASE EVENT DATE: 20150122
